FAERS Safety Report 9009808 (Version 1)
Quarter: 2013Q1

REPORT INFORMATION
  Report Type: Spontaneous
  Country: US (occurrence: US)
  Receive Date: 20130110
  Receipt Date: 20130110
  Transmission Date: 20140127
  Serious: Yes (Hospitalization)
  Sender: FDA-Public Use
  Company Number: US-009507513-1301XAA003119

PATIENT
  Sex: Female

DRUGS (5)
  1. SINGULAIR [Suspect]
     Route: 048
  2. LEVOXACIN [Suspect]
  3. ROCEPHIN [Suspect]
  4. ALIFLUS [Concomitant]
     Indication: ASTHMA
  5. SPIRIVA [Concomitant]

REACTIONS (5)
  - Polyneuropathy [Unknown]
  - Rash [Unknown]
  - Eosinophilia [Unknown]
  - Asthma [Unknown]
  - Allergic granulomatous angiitis [Unknown]
